FAERS Safety Report 6983727-7 (Version None)
Quarter: 2010Q3

REPORT INFORMATION
  Report Type: 
  Country: None (occurrence: None)
  Receive Date: 20100914
  Receipt Date: 20051125
  Transmission Date: 20110219
  Serious: Yes (Hospitalization)
  Sender: FDA-Public Use
  Company Number: US-WYE-H07162108

PATIENT
  Sex: Male
  Weight: 102 kg

DRUGS (4)
  1. IBUPROFEN [Suspect]
     Route: 048
  2. ZYPREXA [Concomitant]
  3. DOXEPIN HCL [Concomitant]
  4. HALDOL [Concomitant]

REACTIONS (1)
  - ULCER HAEMORRHAGE [None]
